FAERS Safety Report 4324759-7 (Version None)
Quarter: 2004Q1

REPORT INFORMATION
  Report Type: 
  Country: None (occurrence: None)
  Receive Date: 20040322
  Receipt Date: 20040310
  Transmission Date: 20041129
  Serious: Yes (Hospitalization)
  Sender: FDA-Public Use
  Company Number: 2004PK00483

PATIENT
  Age: 79 Year
  Sex: Female
  Weight: 60.9 kg

DRUGS (2)
  1. NOLVADEX [Suspect]
     Indication: BREAST CANCER
     Dosage: 20 MG DAILY PO
     Route: 048
     Dates: start: 20030626, end: 20030701
  2. RENITEC [Concomitant]

REACTIONS (12)
  - CATARACT [None]
  - CEREBRAL INFARCTION [None]
  - DIZZINESS [None]
  - HEMIPARESIS [None]
  - HYPOAESTHESIA [None]
  - NAUSEA [None]
  - SICCA SYNDROME [None]
  - SYNCHYSIS SCINTILLANS [None]
  - THROMBOSIS [None]
  - TINNITUS [None]
  - VAGINAL CANDIDIASIS [None]
  - VISUAL ACUITY REDUCED [None]
